FAERS Safety Report 9349910 (Version 1)
Quarter: 2013Q2

REPORT INFORMATION
  Report Type: Spontaneous
  Country: US (occurrence: US)
  Receive Date: 20130614
  Receipt Date: 20130614
  Transmission Date: 20140414
  Serious: Yes (Other)
  Sender: FDA-Public Use
  Company Number: PHHY2013US059520

PATIENT
  Sex: Female
  Weight: 1.6 kg

DRUGS (5)
  1. HYDRALAZINE [Suspect]
     Dosage: MATERNAL DOSE
     Route: 064
  2. LABETALOL [Suspect]
     Dosage: MATERNAL DOSE
     Route: 064
  3. MAGNESIUM [Concomitant]
     Dosage: MATERNAL DOSE: 4 G
     Route: 064
  4. MAGNESIUM [Concomitant]
     Dosage: MATERNAL DOSE: 2 G PER HR
     Route: 064
  5. DEXAMETHASONE [Concomitant]
     Dosage: MATERNAL DOSE: UNKNOWN
     Route: 064

REACTIONS (3)
  - Low birth weight baby [Unknown]
  - Premature baby [Unknown]
  - Foetal exposure during pregnancy [Unknown]
